FAERS Safety Report 19785893 (Version 1)
Quarter: 2021Q3

REPORT INFORMATION
  Report Type: Report from Study
  Country: None (occurrence: US)
  Receive Date: 20210903
  Receipt Date: 20210903
  Transmission Date: 20211014
  Serious: Yes (Hospitalization)
  Sender: FDA-Public Use
  Company Number: US-ABBVIE-21K-163-4064750-00

PATIENT
  Age: 61 Year
  Sex: Male
  Weight: 49.94 kg

DRUGS (13)
  1. MODERNA COVID?19 VACCINE [Concomitant]
     Active Substance: CX-024414
     Route: 030
     Dates: start: 20210813, end: 20210813
  2. MODERNA COVID?19 VACCINE [Concomitant]
     Active Substance: CX-024414
     Indication: COVID-19 IMMUNISATION
     Route: 030
     Dates: start: 20210315, end: 20210315
  3. PROTONIX [Concomitant]
     Active Substance: PANTOPRAZOLE SODIUM
     Indication: DIARRHOEA
  4. CREON [Suspect]
     Active Substance: PANCRELIPASE AMYLASE\PANCRELIPASE LIPASE\PANCRELIPASE PROTEASE
     Indication: PANCREATICODUODENECTOMY
     Dosage: TWO CAPSULES EACH MEAL THREE TIMES A DAY
     Route: 048
     Dates: start: 2018, end: 202108
  5. VANCOMYCIN [Concomitant]
     Active Substance: VANCOMYCIN
     Indication: PRODUCT USED FOR UNKNOWN INDICATION
  6. VITAMIN D3 K2 [Concomitant]
     Indication: SUPPLEMENTATION THERAPY
  7. PROTONIX [Concomitant]
     Active Substance: PANTOPRAZOLE SODIUM
     Indication: PROPHYLAXIS
  8. L?LYSINE [Concomitant]
     Active Substance: LYSINE
     Indication: DYSPEPSIA
  9. CALCIUM [Concomitant]
     Active Substance: CALCIUM
     Indication: DYSPEPSIA
  10. CREON [Suspect]
     Active Substance: PANCRELIPASE AMYLASE\PANCRELIPASE LIPASE\PANCRELIPASE PROTEASE
     Indication: PANCREATIC DISORDER
     Dosage: TWO CAPSULES EACH MEAL THREE TIMES A DAY
     Route: 048
     Dates: start: 202108
  11. ONDANSETRON [Concomitant]
     Active Substance: ONDANSETRON
     Indication: PROPHYLAXIS OF NAUSEA AND VOMITING
  12. MAGNESIUM [Concomitant]
     Active Substance: MAGNESIUM
     Indication: DYSPEPSIA
  13. ZINC. [Concomitant]
     Active Substance: ZINC
     Indication: DYSPEPSIA

REACTIONS (6)
  - Diarrhoea [Recovering/Resolving]
  - Gastrointestinal disorder [Recovering/Resolving]
  - Thrombosis [Recovering/Resolving]
  - Vomiting [Recovering/Resolving]
  - Body temperature increased [Recovering/Resolving]
  - Haemoglobin decreased [Recovering/Resolving]

NARRATIVE: CASE EVENT DATE: 202108
